FAERS Safety Report 6268438-8 (Version None)
Quarter: 2009Q3

REPORT INFORMATION
  Report Type: 
  Country: None (occurrence: None)
  Receive Date: 20090715
  Receipt Date: 20090702
  Transmission Date: 20100115
  Serious: Yes (Hospitalization, Other)
  Sender: FDA-Public Use
  Company Number: JP-PFIZER INC-2008160800

PATIENT
  Age: 75 Year

DRUGS (7)
  1. SUNITINIB MALATE [Suspect]
     Indication: GASTROINTESTINAL STROMAL TUMOUR
     Dosage: 50 MG, 1X/DAY
     Route: 048
     Dates: start: 20081104, end: 20090202
  2. ALDACTONE [Concomitant]
     Dosage: UNK
     Route: 048
  3. ALFAROL [Concomitant]
     Dosage: UNK
     Route: 048
  4. LOXONIN [Concomitant]
     Dosage: UNK
     Route: 048
  5. CYTOTEC [Concomitant]
     Dosage: UNK
     Route: 048
  6. THYRADIN S [Concomitant]
     Dosage: UNK
     Route: 048
  7. FOIPAN [Concomitant]
     Dosage: UNK
     Route: 048

REACTIONS (3)
  - PALMAR-PLANTAR ERYTHRODYSAESTHESIA SYNDROME [None]
  - PNEUMONIA ASPIRATION [None]
  - PYREXIA [None]
